FAERS Safety Report 21139843 (Version 1)
Quarter: 2022Q3

REPORT INFORMATION
  Report Type: Spontaneous
  Country: CH (occurrence: CH)
  Receive Date: 20220728
  Receipt Date: 20220728
  Transmission Date: 20221026
  Serious: Yes (Death, Life-Threatening, Other)
  Sender: FDA-Public Use
  Company Number: CH-AMGEN-CHESP2022127059

PATIENT

DRUGS (2)
  1. BEVACIZUMAB [Suspect]
     Active Substance: BEVACIZUMAB
     Indication: Hepatocellular carcinoma
     Dosage: UNK
     Route: 065
  2. ATEZOLIZUMAB [Suspect]
     Active Substance: ATEZOLIZUMAB
     Indication: Hepatocellular carcinoma
     Dosage: UNK
     Route: 065

REACTIONS (8)
  - Death [Fatal]
  - Oesophageal varices haemorrhage [Unknown]
  - Acute kidney injury [Unknown]
  - Hepatorenal syndrome [Unknown]
  - Hepatic failure [Unknown]
  - Colitis [Unknown]
  - Off label use [Unknown]
  - Drug effective for unapproved indication [Unknown]
